FAERS Safety Report 13666666 (Version 1)
Quarter: 2017Q2

REPORT INFORMATION
  Report Type: Spontaneous
  Country: US (occurrence: US)
  Receive Date: 20170619
  Receipt Date: 20170619
  Transmission Date: 20170830
  Serious: No
  Sender: FDA-Public Use
  Company Number: US-ROCHE-695762

PATIENT
  Age: 66 Year
  Sex: Female

DRUGS (3)
  1. XELODA [Suspect]
     Active Substance: CAPECITABINE
     Dosage: DOSE WAS REDUCED. RECEIVED 500 MG FOR 7 DAYS FOLLOWED BY 7 DAYS REST.
     Route: 048
  2. AVASTIN [Suspect]
     Active Substance: BEVACIZUMAB
     Indication: BREAST CANCER METASTATIC
     Route: 042
  3. XELODA [Suspect]
     Active Substance: CAPECITABINE
     Indication: BREAST CANCER METASTATIC
     Dosage: FREQUENCY: BID X 7 DAYS. RECEIVED TWO CYCLES
     Route: 048

REACTIONS (4)
  - Skin fissures [Recovered/Resolved]
  - Back pain [Not Recovered/Not Resolved]
  - Arthralgia [Not Recovered/Not Resolved]
  - Nausea [Recovered/Resolved]

NARRATIVE: CASE EVENT DATE: 201002
